FAERS Safety Report 5724610-4 (Version None)
Quarter: 2008Q2

REPORT INFORMATION
  Report Type: 
  Country: None (occurrence: None)
  Receive Date: 20080430
  Receipt Date: 20080430
  Transmission Date: 20081010
  Serious: Yes (Other)
  Sender: FDA-Public Use
  Company Number: None

PATIENT
  Age: 42 Year
  Sex: Male
  Weight: 59 kg

DRUGS (1)
  1. FOSCARNET [Suspect]
     Indication: CYTOMEGALOVIRUS INFECTION
     Dosage: 3530MG IV EVERY 12 HOURS
     Route: 042
     Dates: start: 20080129, end: 20080219

REACTIONS (2)
  - CYTOMEGALOVIRUS TEST POSITIVE [None]
  - PENILE ULCERATION [None]
